FAERS Safety Report 6439990-4 (Version None)
Quarter: 2009Q4

REPORT INFORMATION
  Report Type: 
  Country: None (occurrence: None)
  Receive Date: 20091113
  Receipt Date: 20091113
  Transmission Date: 20100525
  Serious: Yes (Other)
  Sender: FDA-Public Use
  Company Number: US-PFIZER INC-2009251278

PATIENT
  Sex: Female

DRUGS (1)
  1. CLINDAMYCIN PHOSPHATE [Suspect]
     Indication: BACTERIAL INFECTION
     Dates: start: 20090731

REACTIONS (5)
  - ABDOMINAL PAIN LOWER [None]
  - BLOODY DISCHARGE [None]
  - EXCORIATION [None]
  - INJURY [None]
  - MUSCLE SPASMS [None]
